FAERS Safety Report 21640756 (Version 1)
Quarter: 2022Q4

REPORT INFORMATION
  Report Type: Report from Study
  Country: US (occurrence: US)
  Receive Date: 20221125
  Receipt Date: 20221125
  Transmission Date: 20230113
  Serious: Yes (Other)
  Sender: FDA-Public Use
  Company Number: US-ABBVIE-4175783

PATIENT
  Sex: Male

DRUGS (2)
  1. SKYRIZI [Suspect]
     Active Substance: RISANKIZUMAB-RZAA
     Indication: Psoriasis
     Route: 058
  2. Johnson + Johnson [Concomitant]
     Indication: COVID-19 immunisation
     Dosage: 1 IN 1 ONCE (1ST DOSE)
     Route: 030
     Dates: start: 20210308, end: 20210308

REACTIONS (5)
  - Gastrointestinal perforation [Unknown]
  - COVID-19 [Recovered/Resolved]
  - Diverticulitis [Not Recovered/Not Resolved]
  - Nephrolithiasis [Unknown]
  - Kidney rupture [Unknown]

NARRATIVE: CASE EVENT DATE: 20220101
